FAERS Safety Report 4660329-9 (Version None)
Quarter: 2005Q2

REPORT INFORMATION
  Report Type: 
  Country: None (occurrence: None)
  Receive Date: 20050512
  Receipt Date: 20040712
  Transmission Date: 20051028
  Serious: Yes (Death, Other)
  Sender: FDA-Public Use
  Company Number: 2004UW14407

PATIENT
  Age: 71 Year
  Sex: Female
  Weight: 71.4 kg

DRUGS (8)
  1. IRESSA [Suspect]
     Indication: NON-SMALL CELL LUNG CANCER
     Route: 048
     Dates: start: 20040517, end: 20040621
  2. GENTLAX [Concomitant]
  3. OXYCODONE HCL [Concomitant]
  4. MORPHINE [Concomitant]
  5. GLUCOPHAGE [Concomitant]
  6. LIPITOR [Concomitant]
  7. DYNACIRC [Concomitant]
  8. TRIAMTERENE AND HYDROCHLOROTHIAZIDE [Concomitant]

REACTIONS (3)
  - BALANCE DISORDER [None]
  - DISEASE PROGRESSION [None]
  - NEUTROPHILIA [None]
